FAERS Safety Report 18226474 (Version 1)
Quarter: 2020Q3

REPORT INFORMATION
  Report Type: Spontaneous
  Country: CN (occurrence: CN)
  Receive Date: 20200903
  Receipt Date: 20200903
  Transmission Date: 20201103
  Serious: Yes (Hospitalization)
  Sender: FDA-Public Use
  Company Number: CN-ROCHE-2670934

PATIENT
  Age: 76 Year
  Sex: Male

DRUGS (3)
  1. IRINOTECAN HYDROCHLORIDE INJECTION [Suspect]
     Active Substance: IRINOTECAN HYDROCHLORIDE
     Indication: RECTAL CANCER
     Route: 041
     Dates: start: 20200720
  2. FLUOROURACIL. [Suspect]
     Active Substance: FLUOROURACIL
     Indication: RECTAL CANCER
     Route: 041
     Dates: start: 20200720
  3. AVASTIN [Suspect]
     Active Substance: BEVACIZUMAB
     Indication: RECTAL CANCER
     Route: 041
     Dates: start: 20200720

REACTIONS (1)
  - Myelosuppression [Recovering/Resolving]

NARRATIVE: CASE EVENT DATE: 20200804
